FAERS Safety Report 9168913 (Version 2)
Quarter: 2013Q2

REPORT INFORMATION
  Report Type: Spontaneous
  Country: US (occurrence: None)
  Receive Date: 20130308
  Receipt Date: 20130514
  Transmission Date: 20140414
  Serious: Yes (Other)
  Sender: FDA-Public Use
  Company Number: JPI-P-030161

PATIENT
  Age: 51 Year
  Sex: Female

DRUGS (1)
  1. XYREM [Suspect]
     Indication: NARCOLEPSY
     Dosage: 9GM 94.5GMS,2 IN 1 DAY)
     Route: 048
     Dates: start: 20040303

REACTIONS (5)
  - Road traffic accident [None]
  - Insomnia [None]
  - Delusion [None]
  - Confusional state [None]
  - Panic reaction [None]
